FAERS Safety Report 14103198 (Version 1)
Quarter: 2017Q4

REPORT INFORMATION
  Report Type: Spontaneous
  Country: US (occurrence: US)
  Receive Date: 20171018
  Receipt Date: 20171018
  Transmission Date: 20180321
  Serious: Yes (Hospitalization, Other)
  Sender: FDA-Public Use
  Company Number: US-GLAXOSMITHKLINE-US2017159156

PATIENT
  Sex: Male

DRUGS (4)
  1. LAMICTAL [Suspect]
     Active Substance: LAMOTRIGINE
     Indication: THYROID DISORDER
  2. IBUPROFEN. [Concomitant]
     Active Substance: IBUPROFEN
  3. LAMICTAL [Suspect]
     Active Substance: LAMOTRIGINE
     Indication: BIPOLAR DISORDER
     Dosage: 200 MG, BID
     Route: 048
  4. LAMICTAL [Suspect]
     Active Substance: LAMOTRIGINE
     Indication: HORMONE LEVEL ABNORMAL

REACTIONS (4)
  - Compulsive cheek biting [Unknown]
  - Product use in unapproved indication [Unknown]
  - Oral pain [Unknown]
  - Drug ineffective [Recovering/Resolving]
